FAERS Safety Report 26020178 (Version 1)
Quarter: 2025Q4

REPORT INFORMATION
  Report Type: Spontaneous
  Country: US (occurrence: US)
  Receive Date: 20251110
  Receipt Date: 20251110
  Transmission Date: 20260118
  Serious: No
  Sender: TENSHI KAIZEN PRIVATE LIMITED
  Company Number: US-TENSHI KAIZEN PRIVATE LIMITED-2025TK000123

PATIENT
  Age: 70 Year
  Sex: Male
  Weight: 94.4 kg

DRUGS (1)
  1. LORATADINE [Suspect]
     Active Substance: LORATADINE
     Indication: Hypersensitivity
     Dosage: 10 MILLIGRAMS, USED A FEW TIMES BEFORE  BED
     Route: 048
     Dates: start: 20250728, end: 20250811

REACTIONS (3)
  - Drug ineffective [Unknown]
  - Product packaging difficult to open [Unknown]
  - Product physical issue [Unknown]
